FAERS Safety Report 5651147-3 (Version None)
Quarter: 2008Q1

REPORT INFORMATION
  Report Type: 
  Country: None (occurrence: None)
  Receive Date: 20080305
  Receipt Date: 20080207
  Transmission Date: 20080703
  Serious: Yes (Death)
  Sender: FDA-Public Use
  Company Number: PH-MERCK-0802PHL00007

PATIENT
  Sex: Female

DRUGS (3)
  1. JANUVIA [Suspect]
     Indication: DIABETES MELLITUS
     Route: 048
     Dates: start: 20070101
  2. TELMISARTAN [Concomitant]
     Indication: HYPERTENSION
     Route: 048
  3. CILOSTAZOL [Concomitant]
     Indication: HYPERTENSION
     Route: 048

REACTIONS (2)
  - ADVERSE EVENT [None]
  - BLOOD CREATININE INCREASED [None]
